FAERS Safety Report 19859693 (Version 1)
Quarter: 2021Q3

REPORT INFORMATION
  Report Type: Spontaneous
  Country: US (occurrence: US)
  Receive Date: 20210920
  Receipt Date: 20210920
  Transmission Date: 20211014
  Serious: Yes (Hospitalization)
  Sender: FDA-Public Use
  Company Number: None

PATIENT
  Age: 69 Year
  Sex: Female

DRUGS (8)
  1. LIPITOR , METOCLAZONE, METOPROL SUC, MULTIPLE VITAMIN [Concomitant]
  2. CLONAZEPAM, DOXEPIN, FUROSEMIDE, GABAPENTIN, ISOSORB MONO [Concomitant]
  3. QUIETIAPINE, RAMIRL, REPTHA [Concomitant]
  4. AMLODIPINE, APAP/CODEINE, ATORVASTATIN [Concomitant]
  5. BACLOFEN, BRILINTA, CARBAMAZEPIN, CELECOXIB [Concomitant]
  6. NARCAN, OMEPRAZOLE, PANTOPRAZOLE [Concomitant]
  7. DIMETHYL FUM [Suspect]
     Active Substance: DIMETHYL FUMARATE
     Indication: MULTIPLE SCLEROSIS
     Route: 048
     Dates: start: 20210430
  8. SILENOR, SPIRONLACT, TIZANIDINE, VENLAFAXINE, VOLTAREN [Concomitant]

REACTIONS (2)
  - Fall [None]
  - Multiple sclerosis relapse [None]

NARRATIVE: CASE EVENT DATE: 20210920
